FAERS Safety Report 10617800 (Version 12)
Quarter: 2019Q1

REPORT INFORMATION
  Report Type: Report from Study
  Country: US (occurrence: US)
  Receive Date: 20141201
  Receipt Date: 20190301
  Transmission Date: 20190417
  Serious: Yes (Hospitalization, Other)
  Sender: FDA-Public Use
  Company Number: US-SA-2014SA155839

PATIENT
  Age: 49 Year
  Sex: Female

DRUGS (4)
  1. TERIFLUNOMIDE. [Suspect]
     Active Substance: TERIFLUNOMIDE
     Indication: MULTIPLE SCLEROSIS
     Dosage: 14 MG,QD
     Route: 048
     Dates: start: 20141104
  2. TERIFLUNOMIDE. [Suspect]
     Active Substance: TERIFLUNOMIDE
     Dosage: UNK, QD
     Route: 048
     Dates: start: 201604
  3. COUMADIN [Concomitant]
     Active Substance: WARFARIN SODIUM
     Dosage: UNK
  4. XANAX [Concomitant]
     Active Substance: ALPRAZOLAM
     Dosage: UNK UNK,HS

REACTIONS (37)
  - Hot flush [Unknown]
  - Heart rate increased [Unknown]
  - Eye operation [Unknown]
  - Eye pain [Unknown]
  - Nasal congestion [Unknown]
  - Vomiting [Unknown]
  - Diarrhoea [Unknown]
  - Influenza like illness [Recovered/Resolved]
  - Urinary retention [Unknown]
  - Visual impairment [Unknown]
  - Mood swings [Not Recovered/Not Resolved]
  - Vitamin D decreased [Not Recovered/Not Resolved]
  - Weight decreased [Not Recovered/Not Resolved]
  - Crying [Unknown]
  - Dysuria [Unknown]
  - Memory impairment [Unknown]
  - Depression [Recovered/Resolved]
  - Immune system disorder [Unknown]
  - Decreased appetite [Not Recovered/Not Resolved]
  - Nausea [Unknown]
  - Alopecia [Unknown]
  - Affect lability [Not Recovered/Not Resolved]
  - Muscle spasms [Recovering/Resolving]
  - Insomnia [Unknown]
  - Gastroenteritis viral [Recovering/Resolving]
  - Headache [Unknown]
  - Dysstasia [Unknown]
  - International normalised ratio decreased [Not Recovered/Not Resolved]
  - Cataract [Recovering/Resolving]
  - Pain [Recovering/Resolving]
  - Muscular weakness [Not Recovered/Not Resolved]
  - Fatigue [Not Recovered/Not Resolved]
  - Feeling jittery [Unknown]
  - Anxiety [Unknown]
  - Asthenia [Unknown]
  - Nasopharyngitis [Not Recovered/Not Resolved]
  - Hypoaesthesia [Unknown]

NARRATIVE: CASE EVENT DATE: 201411
